FAERS Safety Report 22339820 (Version 1)
Quarter: 2023Q2

REPORT INFORMATION
  Report Type: Spontaneous
  Country: US (occurrence: US)
  Receive Date: 20230518
  Receipt Date: 20230518
  Transmission Date: 20230722
  Serious: No
  Sender: FDA-Public Use
  Company Number: US-BAYER-2023A065052

PATIENT
  Age: 80 Year
  Sex: Male

DRUGS (1)
  1. ASTEPRO [Suspect]
     Active Substance: AZELASTINE HYDROCHLORIDE
     Dosage: 1-2 SPRAYS IN EACH NOSTRILS, TID
     Route: 045

REACTIONS (2)
  - Inappropriate schedule of product administration [Unknown]
  - Product packaging issue [Unknown]
